FAERS Safety Report 24652431 (Version 1)
Quarter: 2024Q4

REPORT INFORMATION
  Report Type: Spontaneous
  Country: US (occurrence: None)
  Receive Date: 20241122
  Receipt Date: 20241122
  Transmission Date: 20250115
  Serious: Yes (unspecified)
  Sender: Public
  Company Number: None

PATIENT
  Age: 40 Year
  Sex: Female

DRUGS (1)
  1. BUSPIRONE HCL [Suspect]
     Active Substance: BUSPIRONE HYDROCHLORIDE
     Indication: Anxiety
     Dosage: 10.00 MG 3 TIMES A DAY ORAL ?
     Route: 048
     Dates: end: 20240622

REACTIONS (2)
  - Angioedema [None]
  - Drug ineffective [None]

NARRATIVE: CASE EVENT DATE: 20240622
